FAERS Safety Report 15879862 (Version 1)
Quarter: 2019Q1

REPORT INFORMATION
  Report Type: Spontaneous
  Country: SE (occurrence: SE)
  Receive Date: 20190128
  Receipt Date: 20190128
  Transmission Date: 20190417
  Serious: Yes (Disabling)
  Sender: FDA-Public Use
  Company Number: SE-ACTELION-A-CH2019-185199

PATIENT
  Age: 40 Year
  Sex: Female

DRUGS (1)
  1. UPTRAVI [Suspect]
     Active Substance: SELEXIPAG
     Indication: PULMONARY ARTERIAL HYPERTENSION
     Dosage: UNK
     Route: 048

REACTIONS (2)
  - Mouth ulceration [Not Recovered/Not Resolved]
  - Oral lichen planus [Not Recovered/Not Resolved]

NARRATIVE: CASE EVENT DATE: 20180531
